FAERS Safety Report 4351143-2 (Version None)
Quarter: 2004Q2

REPORT INFORMATION
  Report Type: 
  Country: None (occurrence: None)
  Receive Date: 20040427
  Receipt Date: 20040413
  Transmission Date: 20050107
  Serious: Yes (Hospitalization, Other)
  Sender: FDA-Public Use
  Company Number: ZONI001395

PATIENT
  Age: 65 Year
  Sex: Female

DRUGS (4)
  1. EXCEGRAN (ZONISAMIDE) [Suspect]
     Indication: EPILEPSY
     Dosage: 200 MG DAILY ORAL
     Route: 048
     Dates: start: 20040323, end: 20040330
  2. LIPOVAS (SIMVASTATIN) [Concomitant]
  3. CONIEL (BENIDIPINE HYDROCHLORIDE) [Concomitant]
  4. ANTIPYRETICS, ANALGESICS AND ANTI-INFLAMMATORY (ANTIPYRETICS, ANALGESI [Concomitant]

REACTIONS (4)
  - ANOREXIA [None]
  - OCULOMUCOCUTANEOUS SYNDROME [None]
  - PYREXIA [None]
  - RASH [None]
